FAERS Safety Report 8071662-5 (Version None)
Quarter: 2012Q1

REPORT INFORMATION
  Report Type: 
  Country: None (occurrence: None)
  Receive Date: 20120125
  Receipt Date: 20120118
  Transmission Date: 20120608
  Serious: Yes (Other)
  Sender: FDA-Public Use
  Company Number: BR-PFIZER INC-2012014976

PATIENT
  Age: 66 Year
  Sex: Male
  Weight: 67 kg

DRUGS (9)
  1. COMBIGAN [Concomitant]
     Indication: CATARACT
     Dosage: 1 GTT IN EACH EYE, 2X/DAY
  2. HYDROCHLOROTHIAZIDE [Concomitant]
     Indication: DIABETES MELLITUS
     Dosage: UNK
     Dates: start: 20020101
  3. XALATAN [Suspect]
     Indication: CATARACT
     Dosage: 1 GTT IN EACH EYE, 1X/DAY
     Route: 047
     Dates: start: 20090101
  4. LOSARTAN [Concomitant]
     Indication: DIABETES MELLITUS
     Dosage: UNK
     Dates: start: 20020101
  5. INSULIN [Concomitant]
     Indication: DIABETES MELLITUS
     Dosage: UNK
     Dates: start: 20020101
  6. OMEPRAZOLE [Concomitant]
     Indication: DIABETES MELLITUS
     Dosage: UNK
     Dates: start: 20020101
  7. NIFEDIPINE [Concomitant]
     Indication: HYPERTENSION
  8. SIMVASTATIN [Concomitant]
     Indication: DIABETES MELLITUS
     Dosage: UNK
     Dates: start: 20020101
  9. NIFEDIPINE [Concomitant]
     Indication: DIABETES MELLITUS
     Dosage: UNK
     Dates: start: 20020101

REACTIONS (1)
  - CATARACT [None]
